FAERS Safety Report 16025371 (Version 4)
Quarter: 2020Q1

REPORT INFORMATION
  Report Type: Spontaneous
  Country: US (occurrence: US)
  Receive Date: 20190301
  Receipt Date: 20200313
  Transmission Date: 20200409
  Serious: Yes (Death, Hospitalization, Other)
  Sender: FDA-Public Use
  Company Number: US-ASTRAZENECA-2019SE09894

PATIENT
  Age: 91 Year
  Sex: Male

DRUGS (48)
  1. FINASTERIDE. [Concomitant]
     Active Substance: FINASTERIDE
     Indication: PROSTATOMEGALY
     Route: 065
     Dates: start: 2017
  2. BENZONATATE. [Concomitant]
     Active Substance: BENZONATATE
     Indication: COUGH
     Route: 065
     Dates: start: 2017
  3. SODIUM BICARBONATE. [Concomitant]
     Active Substance: SODIUM BICARBONATE
     Indication: DYSPEPSIA
     Route: 065
     Dates: start: 2017
  4. VYTORIN [Concomitant]
     Active Substance: EZETIMIBE\SIMVASTATIN
     Indication: BLOOD CHOLESTEROL INCREASED
     Route: 065
     Dates: start: 2014, end: 2015
  5. CYANOCOBALAMIN. [Concomitant]
     Active Substance: CYANOCOBALAMIN
     Route: 065
     Dates: start: 20171019
  6. MEGESTROL [Concomitant]
     Active Substance: MEGESTROL
     Indication: INCREASED APPETITE
     Route: 065
     Dates: start: 2014
  7. AMOXICILLIN. [Concomitant]
     Active Substance: AMOXICILLIN
     Indication: INFECTION
     Route: 065
     Dates: start: 2017
  8. CYPROHEPTADINE. [Concomitant]
     Active Substance: CYPROHEPTADINE
     Indication: ANTIALLERGIC THERAPY
     Route: 065
     Dates: start: 2014
  9. BUSPIRONE [Concomitant]
     Active Substance: BUSPIRONE HYDROCHLORIDE
     Indication: ANXIETY
     Route: 065
     Dates: start: 2014
  10. CEPHALEXIN. [Concomitant]
     Active Substance: CEPHALEXIN
     Indication: INFECTION
     Route: 065
     Dates: start: 2015
  11. THIAMINE HCL [Concomitant]
     Active Substance: THIAMINE HYDROCHLORIDE
     Route: 065
     Dates: start: 20171019
  12. ASPIRIN. [Concomitant]
     Active Substance: ASPIRIN
     Route: 065
     Dates: start: 20171019
  13. AMOXICILLIN. [Concomitant]
     Active Substance: AMOXICILLIN
     Indication: INFECTION
     Route: 065
     Dates: start: 2014
  14. TERBINAFINE. [Concomitant]
     Active Substance: TERBINAFINE
     Indication: INFECTION
     Route: 065
     Dates: start: 2014, end: 2015
  15. HYOSCYAMINE. [Concomitant]
     Active Substance: HYOSCYAMINE
     Indication: DIARRHOEA
     Route: 065
     Dates: start: 2014, end: 2015
  16. DOCQLACE [Concomitant]
     Active Substance: DOCUSATE SODIUM
     Indication: FAECES SOFT
     Route: 065
     Dates: start: 2015
  17. AZELASTINE. [Concomitant]
     Active Substance: AZELASTINE HYDROCHLORIDE
     Route: 045
     Dates: start: 20171019
  18. SUCRALFATE. [Concomitant]
     Active Substance: SUCRALFATE
     Route: 065
     Dates: start: 20171019
  19. DUREZOL [Concomitant]
     Active Substance: DIFLUPREDNATE
     Route: 065
     Dates: start: 20171019
  20. NITROFURANTOIN. [Concomitant]
     Active Substance: NITROFURANTOIN
     Indication: ANTIBIOTIC THERAPY
     Route: 065
     Dates: start: 2017
  21. CIPROFLOXACIN. [Concomitant]
     Active Substance: CIPROFLOXACIN
     Indication: INFECTION
     Route: 065
     Dates: start: 2011
  22. ZETIA [Concomitant]
     Active Substance: EZETIMIBE
     Indication: BLOOD CHOLESTEROL INCREASED
     Route: 065
     Dates: start: 2015
  23. FUROSEMIDE. [Concomitant]
     Active Substance: FUROSEMIDE
     Indication: FLUID RETENTION
     Route: 065
     Dates: start: 2016
  24. CEPHALEXIN. [Concomitant]
     Active Substance: CEPHALEXIN
     Indication: INFECTION
     Route: 065
     Dates: start: 2011
  25. AAMOX-CLAV [Concomitant]
     Indication: INFECTION
     Route: 065
     Dates: start: 2009
  26. AZITHROMYCIN ANHYDROUS. [Concomitant]
     Active Substance: AZITHROMYCIN ANHYDROUS
     Indication: INFECTION
     Route: 065
     Dates: start: 2017
  27. MEGESTROL [Concomitant]
     Active Substance: MEGESTROL
     Indication: INCREASED APPETITE
     Route: 065
     Dates: start: 2017
  28. DICYCLOMINE [Concomitant]
     Active Substance: DICYCLOMINE HYDROCHLORIDE
     Indication: DIARRHOEA
     Route: 065
     Dates: start: 2015
  29. PAROXETINE. [Concomitant]
     Active Substance: PAROXETINE
     Indication: DEPRESSION
     Route: 065
     Dates: start: 2014
  30. IPRATROPIUM BROMIDE. [Concomitant]
     Active Substance: IPRATROPIUM BROMIDE
     Route: 045
     Dates: start: 20171019
  31. METOPROLOL. [Concomitant]
     Active Substance: METOPROLOL
     Indication: HYPERTENSION
     Route: 065
     Dates: start: 2011, end: 2016
  32. TAMSULOSIN [Concomitant]
     Active Substance: TAMSULOSIN
     Indication: PROSTATOMEGALY
     Route: 065
     Dates: start: 2017
  33. FERROUS SULFATE. [Concomitant]
     Active Substance: FERROUS SULFATE
     Indication: BLOOD IRON
     Route: 065
     Dates: start: 2017
  34. DOXYCYCLINE. [Concomitant]
     Active Substance: DOXYCYCLINE
     Indication: INFECTION
     Route: 065
     Dates: start: 2015
  35. CIPROFLOXACIN. [Concomitant]
     Active Substance: CIPROFLOXACIN
     Indication: INFECTION
     Route: 065
     Dates: start: 2014, end: 2015
  36. LORATADINE. [Concomitant]
     Active Substance: LORATADINE
     Indication: ANTIALLERGIC THERAPY
     Route: 065
     Dates: start: 2015, end: 2016
  37. TOLTERODINE [Concomitant]
     Active Substance: TOLTERODINE
     Indication: BLADDER DISORDER
     Route: 065
     Dates: start: 2016
  38. HYDROCODONE/ACETAMINOPHEN [Concomitant]
     Active Substance: ACETAMINOPHEN\HYDROCODONE
     Indication: PAIN
     Route: 065
     Dates: start: 2014, end: 2015
  39. VYTORIN [Concomitant]
     Active Substance: EZETIMIBE\SIMVASTATIN
     Indication: BLOOD CHOLESTEROL INCREASED
     Route: 065
     Dates: start: 2011
  40. NEXIUM [Suspect]
     Active Substance: ESOMEPRAZOLE MAGNESIUM
     Indication: GASTROOESOPHAGEAL REFLUX DISEASE
     Route: 048
     Dates: start: 2009, end: 2015
  41. SIMVASTATIN. [Concomitant]
     Active Substance: SIMVASTATIN
     Indication: BLOOD CHOLESTEROL INCREASED
     Route: 065
     Dates: start: 2015, end: 2017
  42. VANCOMYCIN [Concomitant]
     Active Substance: VANCOMYCIN
     Indication: INFECTION
     Route: 065
     Dates: start: 2017
  43. BACLOFEN. [Concomitant]
     Active Substance: BACLOFEN
     Indication: MUSCLE RELAXANT THERAPY
     Route: 065
     Dates: start: 2015
  44. OXYCODONE/ACETAMINOPHEN [Concomitant]
     Active Substance: ACETAMINOPHEN\OXYCODONE HYDROCHLORIDE
     Indication: PAIN
     Route: 065
     Dates: start: 2014
  45. NEXIUM [Suspect]
     Active Substance: ESOMEPRAZOLE MAGNESIUM
     Indication: GASTROOESOPHAGEAL REFLUX DISEASE
     Dosage: FOR MULTIPLE AND VARIOUS YEARS.
     Route: 048
  46. NEXIUM [Suspect]
     Active Substance: ESOMEPRAZOLE MAGNESIUM
     Indication: GASTROOESOPHAGEAL REFLUX DISEASE
     Route: 048
     Dates: start: 20090806
  47. NEXIUM 24HR [Suspect]
     Active Substance: ESOMEPRAZOLE MAGNESIUM
     Indication: GASTROOESOPHAGEAL REFLUX DISEASE
     Route: 048
     Dates: start: 2009, end: 2015
  48. VITAMIN B COMPLEX [Concomitant]
     Active Substance: CYANOCOBALAMIN\DEXPANTHENOL\NIACINAMIDE\PYRIDOXINE HYDROCHLORIDE\RIBOFLAVIN 5^-PHOSPHATE SODIUM\THIAMINE HYDROCHLORIDE\VITAMIN B COMPLEX
     Route: 065
     Dates: start: 20171019

REACTIONS (4)
  - Rebound acid hypersecretion [Unknown]
  - Renal failure [Fatal]
  - Hypertension [Fatal]
  - Acute kidney injury [Unknown]

NARRATIVE: CASE EVENT DATE: 2017
